FAERS Safety Report 13898807 (Version 4)
Quarter: 2018Q1

REPORT INFORMATION
  Report Type: Report from Study
  Country: MY (occurrence: MY)
  Receive Date: 20170824
  Receipt Date: 20180301
  Transmission Date: 20180508
  Serious: Yes (Hospitalization, Other)
  Sender: FDA-Public Use
  Company Number: MY-GLAXOSMITHKLINE-MY2017077887

PATIENT
  Age: 34 Year
  Sex: Female
  Weight: 55 kg

DRUGS (1)
  1. BELIMUMAB [Suspect]
     Active Substance: BELIMUMAB
     Indication: SYSTEMIC LUPUS ERYTHEMATOSUS
     Dosage: 10 MG/KG, CYC
     Route: 042
     Dates: start: 20170328, end: 20170428

REACTIONS (1)
  - Tooth abscess [Recovered/Resolved]

NARRATIVE: CASE EVENT DATE: 20170521
